FAERS Safety Report 7659313-2 (Version None)
Quarter: 2011Q3

REPORT INFORMATION
  Report Type: 
  Country: None (occurrence: None)
  Receive Date: 20110804
  Receipt Date: 20110804
  Transmission Date: 20111222
  Serious: Yes (Other)
  Sender: FDA-Public Use
  Company Number: None

PATIENT
  Age: 50 Year
  Sex: Female

DRUGS (3)
  1. ZYPREXA [Suspect]
     Indication: MAJOR DEPRESSION
     Dates: start: 20040101
  2. LYRICA [Concomitant]
  3. LITHIUM CARBONATE [Concomitant]

REACTIONS (3)
  - SPEECH DISORDER [None]
  - CONFUSIONAL STATE [None]
  - AMNESIA [None]
